FAERS Safety Report 19711620 (Version 1)
Quarter: 2021Q3

REPORT INFORMATION
  Report Type: Report from Study
  Country: US (occurrence: US)
  Receive Date: 20210816
  Receipt Date: 20210816
  Transmission Date: 20211014
  Serious: No
  Sender: FDA-Public Use
  Company Number: US-TG THERAPEUTICS INC.-TGT002048

PATIENT
  Sex: Female

DRUGS (3)
  1. COCONUT OIL [Concomitant]
     Active Substance: COCONUT OIL
     Indication: HAEMORRHOIDS
  2. UMBRALISIB [Suspect]
     Active Substance: UMBRALISIB
     Indication: PRODUCT USED FOR UNKNOWN INDICATION
     Dosage: 200 MILLIGRAM, BID
     Route: 048
     Dates: start: 20210413
  3. IMODIUM [Concomitant]
     Active Substance: LOPERAMIDE HYDROCHLORIDE
     Indication: PRODUCT USED FOR UNKNOWN INDICATION

REACTIONS (4)
  - Dry skin [Unknown]
  - Dysuria [Unknown]
  - Nocturia [Unknown]
  - Diarrhoea [Unknown]
